FAERS Safety Report 14824536 (Version 4)
Quarter: 2019Q3

REPORT INFORMATION
  Report Type: Spontaneous
  Country: US (occurrence: US)
  Receive Date: 20180429
  Receipt Date: 20190729
  Transmission Date: 20191004
  Serious: Yes (Hospitalization, Other)
  Sender: FDA-Public Use
  Company Number: US-ASTRAZENECA-2018SE51073

PATIENT
  Sex: Female

DRUGS (21)
  1. NEXIUM [Suspect]
     Active Substance: ESOMEPRAZOLE MAGNESIUM
     Indication: GASTROOESOPHAGEAL REFLUX DISEASE
     Route: 048
     Dates: start: 201103, end: 20161231
  2. DEXILANT [Suspect]
     Active Substance: DEXLANSOPRAZOLE
     Route: 065
  3. ESCITALOPRAM [Concomitant]
     Active Substance: ESCITALOPRAM OXALATE
     Route: 065
  4. PREVACID [Suspect]
     Active Substance: LANSOPRAZOLE
     Route: 065
  5. AMLODIPINE [Concomitant]
     Active Substance: AMLODIPINE BESYLATE
     Route: 065
  6. NORVASC [Concomitant]
     Active Substance: AMLODIPINE BESYLATE
     Route: 065
  7. NEXIUM [Suspect]
     Active Substance: ESOMEPRAZOLE MAGNESIUM
     Indication: GASTROOESOPHAGEAL REFLUX DISEASE
     Dosage: VARIOUS YEARS AND DATES INCLUDING BEGINNING IN OR BEFORE 2011
     Route: 048
  8. PRILOSEC OTC [Suspect]
     Active Substance: OMEPRAZOLE MAGNESIUM
     Route: 048
  9. LISINOPRIL. [Concomitant]
     Active Substance: LISINOPRIL
     Route: 065
  10. FUROSEMIDE. [Concomitant]
     Active Substance: FUROSEMIDE
     Route: 065
  11. L-LYSINE [Concomitant]
     Active Substance: LYSINE
     Route: 065
  12. NEXIUM 24HR [Suspect]
     Active Substance: ESOMEPRAZOLE MAGNESIUM
     Route: 048
  13. VITAMIN C [Concomitant]
     Active Substance: ASCORBIC ACID
     Route: 065
  14. PROTONIX [Suspect]
     Active Substance: PANTOPRAZOLE SODIUM
     Route: 065
  15. ATENOLOL. [Concomitant]
     Active Substance: ATENOLOL
     Route: 065
  16. MIRALAX [Concomitant]
     Active Substance: POLYETHYLENE GLYCOL 3350
     Route: 065
  17. TYLENOL [Concomitant]
     Active Substance: ACETAMINOPHEN
     Route: 065
  18. NEXIUM [Suspect]
     Active Substance: ESOMEPRAZOLE MAGNESIUM
     Indication: GASTROOESOPHAGEAL REFLUX DISEASE
     Route: 048
  19. PRILOSEC [Suspect]
     Active Substance: OMEPRAZOLE MAGNESIUM
     Route: 048
  20. ATENOLOL. [Concomitant]
     Active Substance: ATENOLOL
     Route: 065
  21. PREVACID 24 HR [Suspect]
     Active Substance: LANSOPRAZOLE
     Route: 065

REACTIONS (4)
  - Acute kidney injury [Unknown]
  - Rebound acid hypersecretion [Unknown]
  - Chronic kidney disease [Unknown]
  - Renal failure [Not Recovered/Not Resolved]
